FAERS Safety Report 14510182 (Version 1)
Quarter: 2018Q1

REPORT INFORMATION
  Report Type: Spontaneous
  Country: US (occurrence: US)
  Receive Date: 20180208
  Receipt Date: 20180208
  Transmission Date: 20180509
  Serious: Yes (Other)
  Sender: FDA-Public Use
  Company Number: None

PATIENT
  Sex: Female
  Weight: 61.65 kg

DRUGS (2)
  1. MIRENA [Suspect]
     Active Substance: LEVONORGESTREL
     Indication: UTERINE LEIOMYOMA
     Route: 067
     Dates: start: 20141103, end: 20161015
  2. MIRENA [Suspect]
     Active Substance: LEVONORGESTREL
     Indication: CONTRACEPTION
     Route: 067
     Dates: start: 20141103, end: 20161015

REACTIONS (8)
  - Deafness [None]
  - Hyperhidrosis [None]
  - Affective disorder [None]
  - Abnormal behaviour [None]
  - Vomiting [None]
  - Anger [None]
  - Tremor [None]
  - Syncope [None]

NARRATIVE: CASE EVENT DATE: 20141103
